FAERS Safety Report 20921451 (Version 1)
Quarter: 2022Q2

REPORT INFORMATION
  Report Type: Spontaneous
  Country: ES (occurrence: ES)
  Receive Date: 20220606
  Receipt Date: 20220606
  Transmission Date: 20220721
  Serious: Yes (Hospitalization, Other)
  Sender: FDA-Public Use
  Company Number: ES-SA-200123502GDDC

PATIENT
  Age: 75 Year
  Sex: Male

DRUGS (3)
  1. DILTIAZEM HYDROCHLORIDE [Suspect]
     Active Substance: DILTIAZEM HYDROCHLORIDE
     Indication: Hypertension
     Route: 048
     Dates: start: 199905, end: 200002
  2. SIMVASTATIN [Suspect]
     Active Substance: SIMVASTATIN
     Indication: Hypercholesterolaemia
     Route: 048
     Dates: start: 1994, end: 199911
  3. SIMVASTATIN [Suspect]
     Active Substance: SIMVASTATIN
     Route: 048
     Dates: start: 199911

REACTIONS (5)
  - Rhabdomyolysis [Unknown]
  - Myositis [Unknown]
  - Hypoalbuminaemia [Unknown]
  - Muscular weakness [Unknown]
  - Renal impairment [Unknown]

NARRATIVE: CASE EVENT DATE: 19991201
